FAERS Safety Report 6593675-2 (Version None)
Quarter: 2010Q1

REPORT INFORMATION
  Report Type: 
  Country: None (occurrence: None)
  Receive Date: 20100222
  Receipt Date: 20091028
  Transmission Date: 20100710
  Serious: No
  Sender: FDA-Public Use
  Company Number: PR-BRISTOL-MYERS SQUIBB COMPANY-14835920

PATIENT
  Age: 67 Year
  Sex: Female

DRUGS (4)
  1. ORENCIA [Suspect]
     Dosage: STARTED 1 YEAR AGO
  2. BENADRYL [Concomitant]
     Indication: PREMEDICATION
  3. PROVENTIL [Concomitant]
     Indication: PREMEDICATION
  4. STEROIDS [Concomitant]
     Indication: PREMEDICATION

REACTIONS (1)
  - DYSPNOEA [None]
